FAERS Safety Report 6193793-7 (Version None)
Quarter: 2009Q2

REPORT INFORMATION
  Report Type: 
  Country: None (occurrence: None)
  Receive Date: 20090518
  Receipt Date: 20080522
  Transmission Date: 20091009
  Serious: Yes (Other)
  Sender: FDA-Public Use
  Company Number: ES-B.I. PHARMACEUTICALS,INC./RIDGEFIELD-2008-BP-07872YA

PATIENT
  Age: 66 Year
  Sex: Male

DRUGS (2)
  1. OMNIC OCAS ORODISPERSABLE [Suspect]
     Indication: BENIGN PROSTATIC HYPERPLASIA
     Dosage: .4MG
     Route: 048
     Dates: start: 20070815, end: 20071030
  2. LOBIVON [Concomitant]
     Indication: HYPERTENSION
     Dates: start: 20040101, end: 20071030

REACTIONS (2)
  - ARRHYTHMIA [None]
  - ATRIAL FIBRILLATION [None]
